FAERS Safety Report 10586144 (Version 1)
Quarter: 2014Q4

REPORT INFORMATION
  Report Type: Spontaneous
  Country: HU (occurrence: HU)
  Receive Date: 20141115
  Receipt Date: 20141115
  Transmission Date: 20150529
  Serious: Yes (Other)
  Sender: FDA-Public Use
  Company Number: PHHY2014HU146087

PATIENT
  Age: 9 Year
  Sex: Female

DRUGS (1)
  1. TOBRAMYCIN. [Suspect]
     Active Substance: TOBRAMYCIN
     Indication: CYSTIC FIBROSIS
     Route: 055

REACTIONS (3)
  - Anaemia [Unknown]
  - Pulmonary vascular disorder [Unknown]
  - Haemoptysis [Recovered/Resolved]
